FAERS Safety Report 24314251 (Version 1)
Quarter: 2024Q3

REPORT INFORMATION
  Report Type: Spontaneous
  Country: GB (occurrence: GB)
  Receive Date: 20240912
  Receipt Date: 20240912
  Transmission Date: 20241016
  Serious: Yes (Other)
  Sender: DAIICHI
  Company Number: None

PATIENT
  Age: 72 Year
  Sex: Male

DRUGS (14)
  1. EDOXABAN [Suspect]
     Active Substance: EDOXABAN
     Indication: Product used for unknown indication
     Dosage: 60 MG, QD (ONE TO BE TAKEN EACH MORNING - SUSPENDED MOST LIKELY AS BOWEL OBSTRUCTION SO NOT BEING AB
     Route: 065
  2. POTASSIUM BICARBONATE\SODIUM ALGINATE [Concomitant]
     Active Substance: POTASSIUM BICARBONATE\SODIUM ALGINATE
     Indication: Product used for unknown indication
     Dosage: UNK, AS NEEDED (ONE OR TWO 5 ML SPOONFULS TO BE TAKEN THREE TIMES A DAY AFTER FOOD AND AT NIGHT WHEN
     Route: 065
  3. ZOPICLONE [Concomitant]
     Active Substance: ZOPICLONE
     Indication: Product used for unknown indication
     Dosage: 7.5 MG, BID (ONE EVERY OTHER NIGHT /PRNLAST ISSUED: 13-DEC-2023)
     Route: 065
  4. LANSOPRAZOLE [Concomitant]
     Active Substance: LANSOPRAZOLE
     Indication: Product used for unknown indication
     Dosage: 15 MG, QD (ONE TO BE TAKEN EACH MORNING)
     Route: 065
  5. ALBUTEROL [Concomitant]
     Active Substance: ALBUTEROL
     Indication: Product used for unknown indication
     Dosage: 2 DF, AS NEEDED (2 PUFF AS REQUIREDLAST ISSUED: 01-NOV-2023)
     Route: 065
  6. FERROUS FUMARATE [Concomitant]
     Active Substance: FERROUS FUMARATE
     Indication: Product used for unknown indication
     Dosage: 210 MG, BID (ONE TO BE TAKEN TWICE A DAY-STOPPED TAKING MONTHS AGO; REPORTS SWITCHED TO FOLIC ACID B
     Route: 065
  7. BRALTUS ZONDA [Concomitant]
     Indication: Product used for unknown indication
     Dosage: 10 UG, QD (INHALE THE CONTENTS OF ONE CAPSULE VIA THE ZONDA INHALER DEVICE ONCE DAILY)
  8. BISOPROLOL [Concomitant]
     Active Substance: BISOPROLOL\BISOPROLOL FUMARATE
     Indication: Product used for unknown indication
     Dosage: 1.25 MG, QD (1.25 MG TABLETS ONE TO BE TAKEN EACH DAY)
     Route: 065
  9. FOLIC ACID [Concomitant]
     Active Substance: FOLIC ACID
     Indication: Product used for unknown indication
     Dosage: UNK
     Route: 065
  10. ACETAMINOPHEN [Concomitant]
     Active Substance: ACETAMINOPHEN
     Indication: Product used for unknown indication
     Dosage: 2 DF, AS NEEDED (TWO TO BE TAKEN EVERY 4 - 6 HOURS UP TO FOUR TIMES A DAY AS NEEDED)
     Route: 065
  11. RAMIPRIL [Concomitant]
     Active Substance: RAMIPRIL
     Indication: Product used for unknown indication
     Dosage: 5 MG, QD (ONE TO BE TAKEN EACH DAY)
     Route: 065
  12. SYMBICORT [Concomitant]
     Active Substance: BUDESONIDE\FORMOTEROL FUMARATE DIHYDRATE
     Indication: Product used for unknown indication
     Dosage: 1 DF, BID (ONE PUFF TO BE INHALED TWICE A DAY)
  13. FAMOTIDINE [Concomitant]
     Active Substance: FAMOTIDINE
     Indication: Product used for unknown indication
     Dosage: UNK
     Route: 065
  14. ATORVASTATIN [Concomitant]
     Active Substance: ATORVASTATIN
     Indication: Product used for unknown indication
     Dosage: UNK
     Route: 065

REACTIONS (1)
  - Embolism [Unknown]
